FAERS Safety Report 4372351-0 (Version None)
Quarter: 2004Q2

REPORT INFORMATION
  Report Type: 
  Country: None (occurrence: None)
  Receive Date: 20040602
  Receipt Date: 20040518
  Transmission Date: 20050107
  Serious: Yes (Hospitalization)
  Sender: FDA-Public Use
  Company Number: 200403964

PATIENT
  Age: 35 Year
  Sex: Male

DRUGS (1)
  1. DYSPORT (BOTULINUM TOXIN TYPE A) [Suspect]
     Indication: MUSCLE SPASTICITY
     Dosage: 1000 UNITS PRN IM
     Route: 030

REACTIONS (13)
  - ALANINE AMINOTRANSFERASE INCREASED [None]
  - ASPARTATE AMINOTRANSFERASE INCREASED [None]
  - ASTHENIA [None]
  - BLOOD CREATINE PHOSPHOKINASE INCREASED [None]
  - DRUG EFFECT DECREASED [None]
  - DYSARTHRIA [None]
  - DYSPHAGIA [None]
  - ELECTROMYOGRAM ABNORMAL [None]
  - EYELID PTOSIS [None]
  - GASTROINTESTINAL DISORDER [None]
  - IIIRD NERVE PARESIS [None]
  - NEUROMYOPATHY [None]
  - OVERDOSE [None]
